FAERS Safety Report 5947156-7 (Version None)
Quarter: 2008Q4

REPORT INFORMATION
  Report Type: 
  Country: None (occurrence: None)
  Receive Date: 20081106
  Receipt Date: 20081023
  Transmission Date: 20090506
  Serious: Yes (Hospitalization)
  Sender: FDA-Public Use
  Company Number: 2008AL011428

PATIENT
  Age: 76 Year
  Sex: Female

DRUGS (7)
  1. DIGOXIN [Suspect]
     Indication: ATRIAL FIBRILLATION
     Dosage: 0.25MG, PO
     Route: 048
  2. COREG [Concomitant]
  3. VASOTEC [Concomitant]
  4. ALDACTONE [Concomitant]
  5. CORDARONE [Concomitant]
  6. COUMADIN [Concomitant]
  7. K-DUR [Concomitant]

REACTIONS (6)
  - ASTHENIA [None]
  - DYSPNOEA [None]
  - HEART RATE IRREGULAR [None]
  - LOSS OF CONSCIOUSNESS [None]
  - MALAISE [None]
  - THERAPEUTIC AGENT TOXICITY [None]
